FAERS Safety Report 22180148 (Version 2)
Quarter: 2023Q2

REPORT INFORMATION
  Report Type: Report from Study
  Country: AU (occurrence: AU)
  Receive Date: 20230406
  Receipt Date: 20230605
  Transmission Date: 20230721
  Serious: Yes (Other)
  Sender: FDA-Public Use
  Company Number: AU-002147023-NVSC2023AU001120

PATIENT
  Sex: Female

DRUGS (5)
  1. KESIMPTA [Suspect]
     Active Substance: OFATUMUMAB
     Indication: Relapsing-remitting multiple sclerosis
     Dosage: 20 MG, QMO
     Route: 058
     Dates: start: 20221227
  2. MIRABEGRON [Suspect]
     Active Substance: MIRABEGRON
     Indication: Bladder disorder
     Dosage: UNK
     Route: 065
  3. NALTREXONE [Suspect]
     Active Substance: NALTREXONE
     Indication: Bladder disorder
     Dosage: UNK
     Route: 065
  4. PANADOL [Concomitant]
     Active Substance: ACETAMINOPHEN
     Indication: Product used for unknown indication
     Dosage: UNK (HAD 45 MINUTES BEFORE HIS INJECTION)
     Route: 065
  5. CLARITIN [Concomitant]
     Active Substance: LORATADINE
     Indication: Product used for unknown indication
     Dosage: UNK (HAD 45 MINUTES BEFORE HIS INJECTION)
     Route: 065

REACTIONS (12)
  - Multiple sclerosis [Unknown]
  - Crush syndrome [Not Recovered/Not Resolved]
  - Nasal disorder [Not Recovered/Not Resolved]
  - Lymphadenopathy [Unknown]
  - Pyrexia [Unknown]
  - Gait disturbance [Unknown]
  - Bladder disorder [Unknown]
  - Rash [Unknown]
  - Injection site reaction [Unknown]
  - Injection site pruritus [Recovered/Resolved]
  - Injection site urticaria [Unknown]
  - Injection site erythema [Recovered/Resolved]
